FAERS Safety Report 5873150-0 (Version None)
Quarter: 2008Q3

REPORT INFORMATION
  Report Type: 
  Country: None (occurrence: None)
  Receive Date: 20080908
  Receipt Date: 20080901
  Transmission Date: 20090109
  Serious: Yes (Hospitalization, Other)
  Sender: FDA-Public Use
  Company Number: CH-WYE-G02090408

PATIENT
  Age: 43 Year
  Sex: Female

DRUGS (6)
  1. EFFEXOR [Interacting]
     Route: 048
     Dates: start: 20070101, end: 20071013
  2. EFFEXOR [Interacting]
     Route: 048
     Dates: start: 20071014, end: 20071021
  3. EFFEXOR [Interacting]
     Route: 048
     Dates: start: 20071022, end: 20071024
  4. LAMICTAL [Suspect]
     Route: 048
     Dates: start: 20070915, end: 20071013
  5. CITALOPRAM HYDROBROMIDE [Interacting]
     Route: 048
     Dates: start: 20070915, end: 20071013
  6. CITALOPRAM HYDROBROMIDE [Interacting]
     Route: 048
     Dates: start: 20071014

REACTIONS (8)
  - AGITATION [None]
  - ANXIETY [None]
  - COMPULSIVE HOARDING [None]
  - DRUG INTERACTION [None]
  - HALLUCINATION, AUDITORY [None]
  - ILLUSION [None]
  - INSOMNIA [None]
  - STEREOTYPY [None]
